FAERS Safety Report 6439974-6 (Version None)
Quarter: 2009Q4

REPORT INFORMATION
  Report Type: 
  Country: None (occurrence: None)
  Receive Date: 20091112
  Receipt Date: 20091112
  Transmission Date: 20100525
  Serious: Yes (Death)
  Sender: FDA-Public Use
  Company Number: None

PATIENT
  Sex: Male
  Weight: 52.1637 kg

DRUGS (2)
  1. FENTANYL-100 [Suspect]
     Indication: PAIN
     Dosage: 70 MCG 72 HRS. PATCH
     Dates: start: 20080606
  2. FENTANYL-100 [Concomitant]

REACTIONS (4)
  - ASPIRATION [None]
  - DROWNING [None]
  - SOMNOLENCE [None]
  - VOMITING [None]
